FAERS Safety Report 11885570 (Version 1)
Quarter: 2016Q1

REPORT INFORMATION
  Report Type: Spontaneous
  Country: FR (occurrence: FR)
  Receive Date: 20160104
  Receipt Date: 20160104
  Transmission Date: 20160526
  Serious: Yes (Other)
  Sender: FDA-Public Use
  Company Number: FR-PFIZER INC-2015475001

PATIENT
  Age: 74 Year
  Sex: Female

DRUGS (10)
  1. INEXIUM [Suspect]
     Active Substance: ESOMEPRAZOLE
     Dosage: 40 MG, DAILY
     Route: 042
     Dates: start: 20151020, end: 20151024
  2. LOVENOX [Suspect]
     Active Substance: ENOXAPARIN SODIUM
     Indication: THROMBOSIS PROPHYLAXIS
     Dosage: 4000 IU, 1X/DAY
     Route: 058
     Dates: start: 20151019, end: 20151024
  3. SPASFON [Suspect]
     Active Substance: PHLOROGLUCINOL
     Indication: PAIN
     Route: 048
  4. ADVIL [Suspect]
     Active Substance: IBUPROFEN
     Indication: PAIN
     Dosage: UNK
     Route: 048
  5. PRIMPERAN [Suspect]
     Active Substance: METOCLOPRAMIDE HYDROCHLORIDE
     Indication: PROPHYLAXIS OF NAUSEA AND VOMITING
     Dosage: 10 MG, AS NEEDED (MAXIMUM 30 MG /DAY )
     Route: 042
     Dates: start: 20151020, end: 20151024
  6. MAXILASE [Suspect]
     Active Substance: PANCRELIPASE
     Indication: COUGH
     Dosage: UNK
     Route: 048
     Dates: start: 20151014, end: 20151017
  7. PARACETAMOL MACOPHARMA [Suspect]
     Active Substance: ACETAMINOPHEN
     Indication: PAIN
     Route: 042
  8. CONTRAMAL [Suspect]
     Active Substance: TRAMADOL HYDROCHLORIDE
     Indication: PAIN
     Dosage: 300 MG, DAILY
     Route: 042
     Dates: start: 20151019, end: 20151024
  9. HELICIDINE [Suspect]
     Active Substance: ESCARGOT
     Indication: COUGH
     Route: 048
  10. FENOFIBRATE. [Concomitant]
     Active Substance: FENOFIBRATE

REACTIONS (1)
  - Hypersensitivity vasculitis [Recovered/Resolved]

NARRATIVE: CASE EVENT DATE: 20151025
